FAERS Safety Report 23528603 (Version 1)
Quarter: 2024Q1

REPORT INFORMATION
  Report Type: Spontaneous
  Country: US (occurrence: US)
  Receive Date: 20240215
  Receipt Date: 20240215
  Transmission Date: 20240410
  Serious: Yes (Other)
  Sender: FDA-Public Use
  Company Number: US-SEATTLE GENETICS-2024SGN00233

PATIENT
  Age: 46 Year
  Sex: Female

DRUGS (3)
  1. TIVDAK [Suspect]
     Active Substance: TISOTUMAB VEDOTIN-TFTV
     Indication: Cervix carcinoma
     Dosage: 2 MG/KG, Q3WEEKS
     Route: 042
     Dates: start: 202201
  2. TIVDAK [Suspect]
     Active Substance: TISOTUMAB VEDOTIN-TFTV
     Dosage: 1.3 MG/KG
     Route: 042
  3. PEMBROLIZUMAB [Suspect]
     Active Substance: PEMBROLIZUMAB
     Indication: Cervix carcinoma
     Dosage: UNK
     Route: 065
     Dates: start: 202103, end: 202112

REACTIONS (8)
  - Corneal opacity [Recovering/Resolving]
  - Punctate keratitis [Unknown]
  - Keratitis [Recovering/Resolving]
  - Conjunctival hyperaemia [Unknown]
  - Chalazion [Unknown]
  - Meibomianitis [Unknown]
  - Meibomian gland dysfunction [Unknown]
  - Conjunctivitis [Unknown]
